FAERS Safety Report 11769878 (Version 1)
Quarter: 2015Q4

REPORT INFORMATION
  Report Type: Report from Study
  Country: BR (occurrence: BR)
  Receive Date: 20151123
  Receipt Date: 20151123
  Transmission Date: 20160304
  Serious: Yes (Hospitalization, Other)
  Sender: FDA-Public Use
  Company Number: BR-ABBVIE-15K-020-1502848-00

PATIENT
  Sex: Female
  Weight: 70 kg

DRUGS (2)
  1. CAPTOPRIL. [Concomitant]
     Active Substance: CAPTOPRIL
     Indication: HYPERTENSION
     Route: 048
     Dates: start: 2014
  2. HUMIRA [Suspect]
     Active Substance: ADALIMUMAB
     Indication: RHEUMATOID ARTHRITIS
     Route: 058
     Dates: start: 20150723

REACTIONS (9)
  - Skin cancer [Unknown]
  - Suture related complication [Not Recovered/Not Resolved]
  - Incision site complication [Not Recovered/Not Resolved]
  - Skin papilloma [Not Recovered/Not Resolved]
  - Arthralgia [Not Recovered/Not Resolved]
  - Axillary mass [Unknown]
  - Malignant melanoma [Not Recovered/Not Resolved]
  - Joint swelling [Not Recovered/Not Resolved]
  - Grip strength decreased [Not Recovered/Not Resolved]
